FAERS Safety Report 25808500 (Version 2)
Quarter: 2025Q4

REPORT INFORMATION
  Report Type: Spontaneous
  Country: GB (occurrence: GB)
  Receive Date: 20250916
  Receipt Date: 20251016
  Transmission Date: 20260118
  Serious: Yes (Hospitalization, Other)
  Sender: PFIZER
  Company Number: None

PATIENT
  Age: 59 Year
  Sex: Female
  Weight: 139 kg

DRUGS (8)
  1. CLINDAMYCIN PHOSPHATE [Suspect]
     Active Substance: CLINDAMYCIN PHOSPHATE
     Indication: Cellulitis
     Dosage: 900 MG, 3X/DAY
     Route: 042
     Dates: start: 20250906, end: 20250912
  2. TEICOPLANIN [Suspect]
     Active Substance: TEICOPLANIN
     Indication: Cellulitis
     Dosage: 1400 MG, 2X/DAY AS LOADING DOSE
     Route: 042
     Dates: start: 20250908, end: 20250912
  3. ACETAMINOPHEN [Concomitant]
     Active Substance: ACETAMINOPHEN
     Dosage: UNK
  4. WARFARIN [Concomitant]
     Active Substance: WARFARIN
     Dosage: UNK
  5. FEXOFENADINE [Concomitant]
     Active Substance: FEXOFENADINE HYDROCHLORIDE
     Dosage: UNK
  6. TRAMADOL [Concomitant]
     Active Substance: TRAMADOL
     Dosage: UNK
  7. LACTULOSE [Concomitant]
     Active Substance: LACTULOSE
     Dosage: UNK
  8. POTASSIUM [Concomitant]
     Active Substance: POTASSIUM
     Dosage: UNK

REACTIONS (11)
  - Urticaria [Not Recovered/Not Resolved]
  - Dyspnoea [Unknown]
  - Tongue disorder [Not Recovered/Not Resolved]
  - Lip ulceration [Not Recovered/Not Resolved]
  - Lip swelling [Not Recovered/Not Resolved]
  - Swelling face [Unknown]
  - Rash maculo-papular [Not Recovered/Not Resolved]
  - Rash erythematous [Unknown]
  - Blister [Unknown]
  - Pruritus [Unknown]
  - Drug eruption [Not Recovered/Not Resolved]

NARRATIVE: CASE EVENT DATE: 20250912
